FAERS Safety Report 8168096-1 (Version None)
Quarter: 2012Q1

REPORT INFORMATION
  Report Type: 
  Country: None (occurrence: None)
  Receive Date: 20120227
  Receipt Date: 20120220
  Transmission Date: 20120608
  Serious: Yes (Life-Threatening, Other)
  Sender: FDA-Public Use
  Company Number: PHHY2011JP74821

PATIENT
  Sex: Female
  Weight: 61 kg

DRUGS (18)
  1. VALERIN [Concomitant]
     Dosage: 200 MG, UNK
     Route: 048
     Dates: end: 20110713
  2. BISOLVON [Concomitant]
     Dosage: 15 ML, UNK
     Route: 048
     Dates: start: 20110827, end: 20111016
  3. MAGNESIUM OXIDE [Concomitant]
     Dosage: 750 MG, UNK
     Route: 048
  4. RISPERDAL [Concomitant]
  5. CLOZARIL [Suspect]
     Dosage: 300 MG, DAILY
     Route: 048
     Dates: start: 20110817, end: 20110818
  6. SILECE [Concomitant]
     Dosage: 1 MG, UNK
     Route: 048
     Dates: end: 20110818
  7. BISOLVON [Concomitant]
     Dosage: 12 MG, UNK
     Route: 048
  8. CEFAZOLIN SODIUM [Concomitant]
     Dosage: 9 G, UNK
     Route: 048
     Dates: start: 20111003
  9. LODOPIN [Concomitant]
  10. MAGNESIUM OXIDE [Concomitant]
     Dosage: 500 MG, UNK
     Route: 048
     Dates: start: 20110818
  11. CLOZARIL [Suspect]
     Dosage: 150 MG, DAILY
     Route: 048
     Dates: start: 20110819, end: 20110819
  12. LEVOTHYROXINE SODIUM [Concomitant]
     Dosage: 50 UG, UNK
     Route: 048
  13. CLOZARIL [Suspect]
     Indication: SCHIZOPHRENIA, DISORGANISED TYPE
     Route: 048
     Dates: start: 20110726, end: 20110814
  14. CLOZARIL [Suspect]
     Dosage: 200 MG, DAILY
     Route: 048
     Dates: start: 20110815, end: 20110816
  15. ZYPREXA [Concomitant]
  16. BIO THREE [Concomitant]
     Dosage: 3 G, UNK
     Dates: end: 20110810
  17. LANSOPRAZOLE [Concomitant]
     Dosage: 30 MG, UNK
     Dates: start: 20110827
  18. LEVOTHYROXINE SODIUM [Concomitant]
     Dosage: 25 UG, UNK
     Route: 048
     Dates: start: 20110909

REACTIONS (5)
  - PYREXIA [None]
  - LOSS OF CONSCIOUSNESS [None]
  - SINUS TACHYCARDIA [None]
  - CARDIAC ARREST [None]
  - URINARY TRACT INFECTION [None]
